FAERS Safety Report 12631007 (Version 2)
Quarter: 2016Q3

REPORT INFORMATION
  Report Type: Spontaneous
  Country: US (occurrence: US)
  Receive Date: 20160808
  Receipt Date: 20160808
  Transmission Date: 20161109
  Serious: No
  Sender: FDA-Public Use
  Company Number: US-BEH-2015051826

PATIENT
  Sex: Female
  Weight: 42 kg

DRUGS (19)
  1. PULMOZYME [Concomitant]
     Active Substance: DORNASE ALFA
     Dosage: EVERYDAY
  2. AZITHROMYCIN ANHYDROUS. [Concomitant]
     Active Substance: AZITHROMYCIN ANHYDROUS
     Dosage: DOSE AS DIRECTED
  3. PULMOZYME 1MG/ML 2.5 ML AMP 6^S [Concomitant]
     Dosage: DOSE AS DIRECTED
  4. ZYRTEC [Concomitant]
     Active Substance: CETIRIZINE HYDROCHLORIDE
     Dosage: 1 DOSE AS DIRECTED
  5. NEXIUM [Concomitant]
     Active Substance: ESOMEPRAZOLE MAGNESIUM
     Dosage: 1 DOSE AS DIRECTED
  6. FLUORIDE [Concomitant]
     Active Substance: SODIUM FLUORIDE
     Dosage: 1 DOSE AS DIRECTED
  7. MULTIVITAMIN [Concomitant]
     Active Substance: VITAMINS
     Dosage: 1 DOSE AS DIRECTED
  8. EPIPEN AUTOINJECTOR [Concomitant]
     Indication: ANAPHYLACTIC REACTION
  9. EPIPEN AUTOINJECTOR 0.3 MG 2 PAK (DEY) [Concomitant]
     Dosage: AS DIRECTED
  10. TOBRAMYCIN SULF INHL 300MG/5ML AMP 56/PK [Concomitant]
     Dosage: DOSE AS DIRECTED
  11. CVS PROBIOTIC CHILDRENS [Concomitant]
     Dosage: 1 DOSE AS DIRECTED
  12. HIZENTRA [Suspect]
     Active Substance: HUMAN IMMUNOGLOBULIN G
     Indication: INFECTIVE EXACERBATION OF BRONCHIECTASIS
     Route: 058
  13. TOBI [Concomitant]
     Active Substance: TOBRAMYCIN
     Dosage: DOSE AS DIRECTED
  14. FLONASE [Concomitant]
     Active Substance: FLUTICASONE PROPIONATE
     Dosage: 1 DOSE AS DIRECTED
  15. TYLENOL CHILDRENS/FLAVOR [Concomitant]
  16. HIZENTRA [Suspect]
     Active Substance: HUMAN IMMUNOGLOBULIN G
     Indication: HYPOGAMMAGLOBULINAEMIA
     Route: 058
  17. DIPHENHYDRAMINE. [Concomitant]
     Active Substance: DIPHENHYDRAMINE
     Dosage: ONE DOSE AS DIRECTED
     Route: 048
  18. NAPROSYN [Concomitant]
     Active Substance: NAPROXEN
     Dosage: 1 DOSE AS DIRECTED
  19. PEPCID [Concomitant]
     Active Substance: FAMOTIDINE
     Dosage: 1 DOSE AS DIRECTED

REACTIONS (2)
  - Administration site reaction [Unknown]
  - Infusion site vesicles [Unknown]
